FAERS Safety Report 14527106 (Version 1)
Quarter: 2018Q1

REPORT INFORMATION
  Report Type: Spontaneous
  Country: IT (occurrence: IT)
  Receive Date: 20180213
  Receipt Date: 20180213
  Transmission Date: 20180509
  Serious: Yes (Other)
  Sender: FDA-Public Use
  Company Number: IT-MYLANLABS-2018M1009584

PATIENT

DRUGS (4)
  1. AZATHIOPRINE. [Suspect]
     Active Substance: AZATHIOPRINE
     Indication: PRODUCT USED FOR UNKNOWN INDICATION
     Dosage: 1.5-2 MG/KG PER DAY
  2. URSODEOXYCHOLIC ACID [Suspect]
     Active Substance: URSODIOL
     Indication: PRODUCT USED FOR UNKNOWN INDICATION
     Dosage: 15-20 MG/KG PER DAY
  3. VANCOMYCIN [Concomitant]
     Active Substance: VANCOMYCIN
     Indication: PRODUCT USED FOR UNKNOWN INDICATION
  4. PREDNISONE. [Suspect]
     Active Substance: PREDNISONE
     Indication: PRODUCT USED FOR UNKNOWN INDICATION
     Dosage: 1 MG, QD

REACTIONS (11)
  - Inflammatory bowel disease [Unknown]
  - Renal failure [Unknown]
  - Colectomy [Unknown]
  - Thrombocytopenia [Unknown]
  - Disease progression [Unknown]
  - Coagulopathy [Unknown]
  - Ascites [Unknown]
  - Liver transplant [Unknown]
  - Portal hypertension [Unknown]
  - Varices oesophageal [Unknown]
  - Drug administered to patient of inappropriate age [Unknown]
